FAERS Safety Report 23468539 (Version 1)
Quarter: 2024Q1

REPORT INFORMATION
  Report Type: Spontaneous
  Country: GB (occurrence: GB)
  Receive Date: 20240202
  Receipt Date: 20240202
  Transmission Date: 20240409
  Serious: Yes (Other)
  Sender: FDA-Public Use
  Company Number: None

PATIENT
  Age: 63 Year
  Sex: Female
  Weight: 76 kg

DRUGS (1)
  1. LEVOTHYROXINE [Suspect]
     Active Substance: LEVOTHYROXINE\LEVOTHYROXINE SODIUM
     Indication: Hypothyroidism
     Dosage: 75 MCG; DURATION: 65 DAYS
     Route: 065
     Dates: start: 20190301, end: 20190505

REACTIONS (3)
  - Joint swelling [Recovered/Resolved]
  - Discomfort [Unknown]
  - Arthralgia [Unknown]

NARRATIVE: CASE EVENT DATE: 20190508
